FAERS Safety Report 9945505 (Version 1)
Quarter: 2014Q1

REPORT INFORMATION
  Report Type: Report from Study
  Country: US (occurrence: US)
  Receive Date: 20140303
  Receipt Date: 20140303
  Transmission Date: 20141002
  Serious: No
  Sender: FDA-Public Use
  Company Number: US-ABBVIE-13P-163-1054728-00

PATIENT
  Age: 50 Year
  Sex: Female
  Weight: 59.93 kg

DRUGS (5)
  1. HUMIRA [Suspect]
     Indication: RHEUMATOID ARTHRITIS
     Route: 058
     Dates: start: 201204, end: 201206
  2. HUMIRA [Suspect]
     Route: 058
     Dates: start: 201210, end: 201212
  3. HUMIRA [Suspect]
     Route: 058
     Dates: start: 201301
  4. FOLIC ACID [Concomitant]
     Indication: RHEUMATOID ARTHRITIS
  5. METHOTREXATE [Concomitant]
     Indication: RHEUMATOID ARTHRITIS

REACTIONS (2)
  - Herpes zoster [Recovered/Resolved]
  - Injection site papule [Not Recovered/Not Resolved]
